FAERS Safety Report 5233816-2 (Version None)
Quarter: 2007Q1

REPORT INFORMATION
  Report Type: 
  Country: None (occurrence: None)
  Receive Date: 20061208
  Receipt Date: 20060321
  Transmission Date: 20070707
  Serious: Yes (Other)
  Sender: FDA-Public Use
  Company Number: 2006UW02783

PATIENT
  Age: 39 Year
  Sex: Male
  Weight: 89.8122 kg

DRUGS (4)
  1. CRESTOR [Suspect]
     Indication: BLOOD CHOLESTEROL INCREASED
     Dosage: 10 MG QD PO
     Route: 048
     Dates: start: 20060101, end: 20060210
  2. GLUCOVANCE [Concomitant]
  3. MONOPRIL [Concomitant]
  4. ACTOS [Concomitant]

REACTIONS (7)
  - ARTHRALGIA [None]
  - DIABETES MELLITUS [None]
  - HYPOAESTHESIA ORAL [None]
  - INSOMNIA [None]
  - LIPIDS INCREASED [None]
  - MUSCULAR WEAKNESS [None]
  - NEUROPATHY PERIPHERAL [None]
